FAERS Safety Report 9843122 (Version 1)
Quarter: 2014Q1

REPORT INFORMATION
  Report Type: Report from Study
  Country: CN (occurrence: CN)
  Receive Date: 20140124
  Receipt Date: 20140124
  Transmission Date: 20141002
  Serious: Yes (Other)
  Sender: FDA-Public Use
  Company Number: CN-BAXTER-2014BAX003955

PATIENT
  Sex: 0

DRUGS (8)
  1. HOLOXAN [Suspect]
     Indication: EXTRANODAL NK/T-CELL LYMPHOMA, NASAL TYPE
     Dosage: 1.2 G/M2, TWO COURSES, DAY 1-3
     Route: 042
  2. UROMITEXAN [Suspect]
     Indication: EXTRANODAL NK/T-CELL LYMPHOMA, NASAL TYPE
     Dosage: TWO COURSES, EVERY 8 HOURS DAY 1-3
     Route: 042
  3. ETOPOSIDE [Suspect]
     Indication: EXTRANODAL NK/T-CELL LYMPHOMA, NASAL TYPE
     Dosage: TWO COURSES, DAY 1-5
     Route: 042
  4. DEXAMETHASONE [Suspect]
     Indication: EXTRANODAL NK/T-CELL LYMPHOMA, NASAL TYPE
     Dosage: TWO COURSES, DAY 1-5
     Route: 042
  5. DEXAMETHASONE [Suspect]
     Dosage: TWO COURSES, DAY 1-5
     Route: 048
  6. PEGASPARGASE [Suspect]
     Indication: EXTRANODAL NK/T-CELL LYMPHOMA, NASAL TYPE
     Dosage: TWO COURSES, 2500 U/M2 ON DAY 8
     Route: 030
  7. METHOTREXATE [Suspect]
     Indication: EXTRANODAL NK/T-CELL LYMPHOMA, NASAL TYPE
     Dosage: TWO COURSES, 1.5 G/M2 DAY 1
     Route: 042
  8. LEUCOVORIN [Suspect]
     Indication: EXTRANODAL NK/T-CELL LYMPHOMA, NASAL TYPE
     Dosage: TWO COURSES, DAY 1-2
     Route: 030

REACTIONS (1)
  - Febrile neutropenia [Unknown]
